FAERS Safety Report 6260216-9 (Version None)
Quarter: 2009Q3

REPORT INFORMATION
  Report Type: 
  Country: None (occurrence: None)
  Receive Date: 20090708
  Receipt Date: 20090304
  Transmission Date: 20100115
  Serious: Yes (Life-Threatening, Hospitalization)
  Sender: FDA-Public Use
  Company Number: B0582611A

PATIENT
  Age: 66 Year
  Sex: Male
  Weight: 80 kg

DRUGS (6)
  1. OMACOR [Suspect]
     Indication: PROPHYLAXIS
     Dosage: 1000MG PER DAY
     Route: 048
     Dates: start: 20040602
  2. BETA BLOCKER [Concomitant]
  3. ASPIRIN [Concomitant]
  4. ACE INHIBITOR [Concomitant]
  5. CLOPIDOGREL [Concomitant]
  6. STATINS [Concomitant]

REACTIONS (2)
  - ACUTE MYOCARDIAL INFARCTION [None]
  - IN-STENT CORONARY ARTERY RESTENOSIS [None]
